FAERS Safety Report 9505477 (Version 1)
Quarter: 2013Q1

REPORT INFORMATION
  Report Type: Spontaneous
  Country: US (occurrence: None)
  Receive Date: 20130220
  Receipt Date: 20130220
  Transmission Date: 20140127
  Serious: No
  Sender: FDA-Public Use
  Company Number: 1000040939

PATIENT
  Age: 61 Year
  Sex: Female

DRUGS (6)
  1. VIIBRYD (VILAZODONE HYDROCHLORIDE) [Suspect]
     Indication: MAJOR DEPRESSION
     Route: 048
     Dates: start: 20121202, end: 20121209
  2. VIIBRYD (VILAZODONE HYDROCHLORIDE) [Suspect]
     Indication: MAJOR DEPRESSION
     Route: 048
     Dates: start: 20121210, end: 201212
  3. VIIBRYD (VILAZODONE HYDROCHLORIDE) [Suspect]
     Indication: MAJOR DEPRESSION
     Route: 048
     Dates: start: 20121014
  4. WELLBUTRIN (BUPROPION HYDROCHLORIDE) [Concomitant]
  5. MIRTAZAPINE (MIRTAZAPINE) [Concomitant]
  6. ABILIFY (ARIPIPRAZOLE) [Concomitant]

REACTIONS (5)
  - Feeling abnormal [None]
  - Diarrhoea [None]
  - Somnolence [None]
  - Decreased interest [None]
  - Anxiety [None]
